FAERS Safety Report 7019829-9 (Version None)
Quarter: 2010Q3

REPORT INFORMATION
  Report Type: 
  Country: None (occurrence: None)
  Receive Date: 20100922
  Receipt Date: 20100908
  Transmission Date: 20110219
  Serious: Yes (Other)
  Sender: FDA-Public Use
  Company Number: 2010MA002608

PATIENT
  Age: 92 Year
  Sex: Female

DRUGS (10)
  1. DIAZEPAM [Suspect]
     Indication: ABNORMAL BEHAVIOUR
     Dosage: 5 MG;X1;IV
     Route: 042
     Dates: start: 20100702, end: 20100702
  2. DIAZEPAM [Suspect]
     Indication: AGITATION
     Dosage: 5 MG;X1;IV
     Route: 042
     Dates: start: 20100702, end: 20100702
  3. OMEPRAZOLE [Concomitant]
  4. LERGIGAN [Concomitant]
  5. IMPUGAN [Concomitant]
  6. ALVEDON [Concomitant]
  7. DUPHALAC [Concomitant]
  8. SPIRONOLAKTON [Concomitant]
  9. EMCONCOR [Concomitant]
  10. PREV MEDS [Concomitant]

REACTIONS (3)
  - APNOEA [None]
  - LOSS OF CONSCIOUSNESS [None]
  - SIMILAR REACTION ON PREVIOUS EXPOSURE TO DRUG [None]
